FAERS Safety Report 25895170 (Version 1)
Quarter: 2025Q4

REPORT INFORMATION
  Report Type: Spontaneous
  Country: US (occurrence: None)
  Receive Date: 20251007
  Receipt Date: 20251007
  Transmission Date: 20260118
  Serious: Yes (Hospitalization)
  Sender: FDA-CTU
  Company Number: None

PATIENT
  Sex: Male

DRUGS (7)
  1. VYNDAQEL [Suspect]
     Active Substance: TAFAMIDIS MEGLUMINE
     Indication: Amyloidosis
     Dosage: ?TAKE 4 CAPSULES BY MOUTH DAILY?
     Route: 048
     Dates: start: 20241206
  2. AMIODARONE [Concomitant]
     Active Substance: AMIODARONE
  3. BUMETANIDE [Concomitant]
     Active Substance: BUMETANIDE
  4. FUROSEMIDE [Concomitant]
     Active Substance: FUROSEMIDE
  5. JARDIANCE [Concomitant]
     Active Substance: EMPAGLIFLOZIN
  6. POTASSIUM CHLORIDE [Concomitant]
     Active Substance: POTASSIUM CHLORIDE
  7. SPIRONOLACTONE [Concomitant]
     Active Substance: SPIRONOLACTONE

REACTIONS (2)
  - Oedema peripheral [None]
  - Pulmonary oedema [None]
